FAERS Safety Report 23143642 (Version 1)
Quarter: 2023Q4

REPORT INFORMATION
  Report Type: Spontaneous
  Country: US (occurrence: None)
  Receive Date: 20231102
  Receipt Date: 20231102
  Transmission Date: 20240110
  Serious: No
  Sender: FDA-Public Use
  Company Number: None

PATIENT
  Sex: Female
  Weight: 49 kg

DRUGS (1)
  1. BACLOFEN [Suspect]
     Active Substance: BACLOFEN

REACTIONS (7)
  - Confusional state [None]
  - Aphasia [None]
  - Encephalopathy [None]
  - Contraindicated product administered [None]
  - Cerebrovascular accident [None]
  - Product use issue [None]
  - Incorrect dose administered [None]
